FAERS Safety Report 6172520-3 (Version None)
Quarter: 2009Q2

REPORT INFORMATION
  Report Type: 
  Country: None (occurrence: None)
  Receive Date: 20090429
  Receipt Date: 20090415
  Transmission Date: 20091009
  Serious: Yes (Hospitalization)
  Sender: FDA-Public Use
  Company Number: JP-GENENTECH-281442

PATIENT
  Age: 60 Year
  Sex: Male

DRUGS (5)
  1. AVASTIN [Suspect]
     Indication: COLON CANCER
     Dosage: 290 MG, Q2W
     Route: 041
     Dates: end: 20090318
  2. FLUOROURACIL [Suspect]
     Indication: COLON CANCER
     Dosage: 3890 MG, Q2W
     Dates: end: 20090318
  3. CAMPTOSAR [Suspect]
     Indication: COLON CANCER
     Dosage: 245 MG, Q2W
     Route: 041
     Dates: end: 20090318
  4. CALCIUM LEVOFOLINATE [Concomitant]
     Indication: COLON CANCER
     Dosage: UNK
     Dates: end: 20090318
  5. GASTER [Concomitant]
     Indication: DRUG USE FOR UNKNOWN INDICATION

REACTIONS (1)
  - HAEMOTHORAX [None]
